FAERS Safety Report 24127924 (Version 1)
Quarter: 2024Q3

REPORT INFORMATION
  Report Type: Spontaneous
  Country: US (occurrence: US)
  Receive Date: 20240723
  Receipt Date: 20240723
  Transmission Date: 20241017
  Serious: No
  Sender: ALKERMES
  Company Number: US-ALKERMES INC.-ALK-2024-001862

PATIENT
  Age: 39 Year
  Sex: Male

DRUGS (1)
  1. LYBALVI [Suspect]
     Active Substance: OLANZAPINE\SAMIDORPHAN L-MALATE
     Indication: Depression
     Dosage: 20/10 MILLIGRAM, QD
     Route: 048
     Dates: start: 202403, end: 202405

REACTIONS (5)
  - Off label use [Recovered/Resolved]
  - Body mass index increased [Unknown]
  - Total cholesterol/HDL ratio increased [Unknown]
  - Blood glucose increased [Unknown]
  - Low density lipoprotein increased [Unknown]

NARRATIVE: CASE EVENT DATE: 20240301
